FAERS Safety Report 14066657 (Version 4)
Quarter: 2019Q1

REPORT INFORMATION
  Report Type: Spontaneous
  Country: US (occurrence: US)
  Receive Date: 20171009
  Receipt Date: 20190118
  Transmission Date: 20190417
  Serious: Yes (Hospitalization, Other)
  Sender: FDA-Public Use
  Company Number: US-PFIZER INC-2017434394

PATIENT
  Age: 63 Year
  Sex: Female
  Weight: 94 kg

DRUGS (32)
  1. ACETAMINOPHEN AND CODEINE [Concomitant]
     Active Substance: ACETAMINOPHEN\CODEINE PHOSPHATE
     Indication: ARTHRALGIA
     Dosage: 2 DF, AS NEEDED (2 TABLETS EVERY 6 HOURS AS NEEDED)
     Route: 048
     Dates: start: 20170717
  2. PROVENTIL [Concomitant]
     Active Substance: ALBUTEROL
     Indication: DYSPNOEA
  3. GLUCOPHAGE [Concomitant]
     Active Substance: METFORMIN HYDROCHLORIDE
     Dosage: 500 MG, 2X/DAY (TAKE 1 TABLET (500MG TOTAL) BY MOUTH2 (TWO) TIMES DAILY WITH A MEAL)
     Route: 048
     Dates: start: 20170809
  4. NASONEX [Concomitant]
     Active Substance: MOMETASONE FUROATE
     Dosage: UNK UNK, DAILY (50MCG/ACT, 2 SPRAYS INTO NOSE)
     Route: 045
  5. ELIQUIS [Concomitant]
     Active Substance: APIXABAN
     Dosage: 5 MG, 2X/DAY (TAKE 1 TABLET (5MG TOTAL))
     Route: 048
     Dates: start: 20170929
  6. ELIQUIS [Concomitant]
     Active Substance: APIXABAN
     Dosage: 10 MG, 2X/DAY
     Route: 048
  7. PROVENTIL [Concomitant]
     Active Substance: ALBUTEROL
     Indication: WHEEZING
     Dosage: 3 ML, AS NEEDED (2.5MG/3ML, 0.083%)
     Dates: start: 20170124
  8. GLUCOTROL [Concomitant]
     Active Substance: GLIPIZIDE
     Dosage: 5 MG, 2X/DAY (TAKE 1 TABLET (5MG TOTAL) BY MOUTH 2 (TWO) TIMES DAILY BEFORE A MEAL)
     Route: 048
     Dates: start: 20170824
  9. K-TAB [Concomitant]
     Active Substance: POTASSIUM CHLORIDE
     Dosage: 20 MEQ, DAILY
     Route: 048
     Dates: start: 20170911
  10. PROVENTIL HFA [Concomitant]
     Active Substance: ALBUTEROL SULFATE
     Indication: DYSPNOEA
  11. CELEBREX [Concomitant]
     Active Substance: CELECOXIB
     Dosage: 200 MG, AS NEEDED  (TAKE 1 CAPSULE (200MG TOTAL) 2(TWO) TIMES DAILY)
     Route: 048
     Dates: start: 20170926
  12. DEPAKOTE [Concomitant]
     Active Substance: DIVALPROEX SODIUM
     Dosage: 500 MG, 1X/DAY (TAKE 1 TABLET (500MG TOTAL) BY MOUTH AT BED TIME)
     Route: 048
     Dates: start: 20170905
  13. DIFLUCAN [Concomitant]
     Active Substance: FLUCONAZOLE
     Dosage: 150 MG, UNK (TAKE 1 TABLET BY MOUTH EVERY 3 DAYS)
     Route: 048
     Dates: start: 20171004
  14. LEVOTHROID [Concomitant]
     Active Substance: LEVOTHYROXINE SODIUM
     Dosage: 50 UG, DAILY (TAKE 1 TABLET (50MCG TOTAL) BY MOUTH DAILY BEFORE BREAKFAST)
     Route: 048
     Dates: start: 20170124
  15. SINGULAIR [Concomitant]
     Active Substance: MONTELUKAST SODIUM
     Dosage: 10 MG, 1X/DAY (TAKE 1 TABLET BY MOUTH EVERY NIGHT AT BEDTIME)
     Route: 048
     Dates: start: 20170811
  16. VENTOLIN HFA [Concomitant]
     Active Substance: ALBUTEROL SULFATE
     Indication: DYSPNOEA
  17. CYMBALTA [Concomitant]
     Active Substance: DULOXETINE HYDROCHLORIDE
     Dosage: 30 MG, 2X/DAY
     Route: 048
     Dates: start: 20170905
  18. LASIX [Concomitant]
     Active Substance: FUROSEMIDE
     Dosage: 40 MG, DAILY
     Route: 048
     Dates: start: 20170911
  19. SYNTHROID [Concomitant]
     Active Substance: LEVOTHYROXINE SODIUM
     Dosage: 50 UG, DAILY (TAKE 1 TABLET (50MCG TOTAL) BY MOUTH DAILY BEFORE BREAKFAST)
     Route: 048
     Dates: start: 20170124
  20. PROVENTIL HFA [Concomitant]
     Active Substance: ALBUTEROL SULFATE
     Indication: WHEEZING
     Dosage: UNK UNK, AS NEEDED (INHALE 2 PUFFS INTO THE LUNGS EVERY 4 (FOUR) HOURS AS NEEDED)
     Route: 055
     Dates: start: 20170124
  21. LYRICA [Suspect]
     Active Substance: PREGABALIN
     Indication: ARTHRITIS
     Dosage: 150 MG, 2X/DAY
     Route: 048
  22. LIPITOR [Concomitant]
     Active Substance: ATORVASTATIN CALCIUM
     Dosage: 20 MG, 1X/DAY (TAKE 1 TABLET (20MG ORALLY BY MOUTH AT BED TIME)
     Route: 048
     Dates: start: 20170622
  23. VIBRA-TABS [Concomitant]
     Active Substance: DOXYCYCLINE HYCLATE
     Dosage: 100 MG, 2X/DAY (TAKE 1 TABLET (100MG TOTAL))
     Route: 048
     Dates: start: 20171006
  24. ROBAXIN [Concomitant]
     Active Substance: METHOCARBAMOL
     Indication: MUSCLE SPASMS
     Dosage: 750 MG, AS NEEDED (TAKE 1 TABLET 2 (TWO) TIMES DAILY)
     Route: 048
     Dates: start: 20170820
  25. LOPRESSOR [Concomitant]
     Active Substance: METOPROLOL TARTRATE
     Dosage: 25 MG, 2X/DAY (TAKE 1 TABLET (25MG TOTAL) )
     Route: 048
     Dates: start: 20170809
  26. TYLENOL WITH CODEINE [Concomitant]
     Active Substance: ACETAMINOPHEN\CODEINE PHOSPHATE
     Indication: PAIN
     Dosage: 2 DF, AS NEEDED [ACETAMINOPHEN 300 MG/CODEINE 30 MG] (EVERY 6(SIX) HOURS)
     Route: 048
     Dates: start: 20170717
  27. VENTOLIN HFA [Concomitant]
     Active Substance: ALBUTEROL SULFATE
     Indication: WHEEZING
     Dosage: UNK, AS NEEDED (2 PUFFS INTO THE LUNGS EVERY 4 (FOUR) HOURS)
     Route: 055
     Dates: start: 20170124
  28. ZYRTEC [Concomitant]
     Active Substance: CETIRIZINE HYDROCHLORIDE
     Dosage: 10 MG, DAILY
     Route: 048
  29. LYRICA [Suspect]
     Active Substance: PREGABALIN
     Indication: DIABETIC NEUROPATHY
  30. TESSALON [Concomitant]
     Active Substance: BENZONATATE
     Indication: COUGH
     Dosage: 100 MG, AS NEEDED (TAKE 1 CAPSULE BY MOUTH 3 TIMES DAILY)
     Route: 048
     Dates: start: 20170622
  31. XYLOCAINE [Concomitant]
     Active Substance: LIDOCAINE HYDROCHLORIDE
     Dosage: UNK UNK, AS NEEDED (APPLY 1 APPLICATION TOPICALLY )
     Route: 061
     Dates: start: 20170522
  32. DULERA [Concomitant]
     Active Substance: FORMOTEROL FUMARATE DIHYDRATE\MOMETASONE FUROATE
     Dosage: UNK [MOMETASONE FUROATE 100 UG/FORMOTEROL FUMARATE 5 UG]TAKE 2 PUFFS FIRST THING IN ON THEN 2 PUFFS
     Route: 045
     Dates: start: 20170824

REACTIONS (12)
  - Muscle spasms [Unknown]
  - Chronic obstructive pulmonary disease [Unknown]
  - Pulmonary thrombosis [Unknown]
  - Pain [Recovering/Resolving]
  - Sinusitis [Not Recovered/Not Resolved]
  - Pain in extremity [Recovering/Resolving]
  - Back pain [Not Recovered/Not Resolved]
  - Arthralgia [Recovering/Resolving]
  - Malaise [Unknown]
  - Migraine [Unknown]
  - Thrombosis [Unknown]
  - Product use issue [Unknown]

NARRATIVE: CASE EVENT DATE: 20170828
